FAERS Safety Report 7258614-X (Version None)
Quarter: 2011Q1

REPORT INFORMATION
  Report Type: 
  Country: None (occurrence: None)
  Receive Date: 20110129
  Receipt Date: 20100502
  Transmission Date: 20110831
  Serious: No
  Sender: FDA-Public Use
  Company Number: US-ABBOTT-09P-163-0570207-00

PATIENT
  Sex: Male
  Weight: 47.67 kg

DRUGS (8)
  1. HUMIRA [Suspect]
     Indication: CROHN'S DISEASE
     Route: 058
     Dates: start: 20070101, end: 20090201
  2. PREDNISONE [Concomitant]
     Indication: CROHN'S DISEASE
     Route: 048
  3. PENTASA [Concomitant]
     Indication: CROHN'S DISEASE
     Route: 048
  4. CIPRO [Concomitant]
     Indication: CROHN'S DISEASE
     Route: 048
  5. PEPCID [Concomitant]
     Indication: CROHN'S DISEASE
     Route: 048
  6. IMODIUM [Concomitant]
     Indication: CROHN'S DISEASE
     Route: 048
  7. HUMIRA [Suspect]
     Route: 058
     Dates: start: 20090201
  8. IMURAN [Concomitant]
     Indication: CROHN'S DISEASE
     Route: 048

REACTIONS (3)
  - CROHN'S DISEASE [None]
  - CLOSTRIDIAL INFECTION [None]
  - INJECTION SITE PAIN [None]
